FAERS Safety Report 16984498 (Version 1)
Quarter: 2019Q4

REPORT INFORMATION
  Report Type: Spontaneous
  Country: US (occurrence: US)
  Receive Date: 20191101
  Receipt Date: 20191101
  Transmission Date: 20200122
  Serious: No
  Sender: FDA-Public Use
  Company Number: US-BAUSCH-BL-2019-059095

PATIENT
  Age: 58 Year
  Sex: Female

DRUGS (2)
  1. XIFAXAN [Suspect]
     Active Substance: RIFAXIMIN
     Indication: POSTOPERATIVE CARE
     Route: 048
     Dates: end: 201907
  2. XIFAXAN [Suspect]
     Active Substance: RIFAXIMIN
     Route: 048
     Dates: start: 2019

REACTIONS (2)
  - Product dose omission [Unknown]
  - Depression [Unknown]

NARRATIVE: CASE EVENT DATE: 201907
